FAERS Safety Report 8555927-6 (Version None)
Quarter: 2012Q3

REPORT INFORMATION
  Report Type: 
  Country: None (occurrence: None)
  Receive Date: 20120801
  Receipt Date: 20120724
  Transmission Date: 20120928
  Serious: No
  Sender: FDA-Public Use
  Company Number: US-BIOGENIDEC-2012BI027172

PATIENT
  Sex: Female

DRUGS (3)
  1. AVONEX [Suspect]
     Indication: MULTIPLE SCLEROSIS
     Route: 030
     Dates: start: 20010801, end: 20081017
  2. AVONEX [Suspect]
     Route: 030
     Dates: start: 20090101, end: 20090130
  3. AVONEX [Suspect]
     Route: 030

REACTIONS (7)
  - NEURALGIA [None]
  - HYPERTENSION [None]
  - JOINT STIFFNESS [None]
  - GLUCOSE TOLERANCE IMPAIRED [None]
  - MENOPAUSE [None]
  - SENSORY DISTURBANCE [None]
  - MULTIPLE SCLEROSIS RELAPSE [None]
